FAERS Safety Report 14091898 (Version 4)
Quarter: 2017Q4

REPORT INFORMATION
  Report Type: Spontaneous
  Country: JP (occurrence: JP)
  Receive Date: 20171016
  Receipt Date: 20171222
  Transmission Date: 20180321
  Serious: Yes (Other)
  Sender: FDA-Public Use
  Company Number: PHJP2017JP030581

PATIENT
  Age: 68 Year
  Sex: Male
  Weight: 64.5 kg

DRUGS (9)
  1. COSENTYX [Suspect]
     Active Substance: SECUKINUMAB
     Dosage: 300 MG, QW
     Route: 058
     Dates: start: 20171120, end: 20171120
  2. COSENTYX [Suspect]
     Active Substance: SECUKINUMAB
     Dosage: 300 MG, UNK
     Route: 058
     Dates: start: 20171104, end: 20171104
  3. TIGASON [Suspect]
     Active Substance: ETRETINATE
     Indication: PSORIASIS
     Dosage: 30 MG IN THE MORNING, 20 MG IN THE EVENING
     Route: 048
     Dates: start: 20170907, end: 20170927
  4. TIGASON [Suspect]
     Active Substance: ETRETINATE
     Dosage: 20 MG IN THE MORNING, 20 MG IN THE EVENING
     Route: 048
     Dates: start: 20170928, end: 20171001
  5. TIGASON [Suspect]
     Active Substance: ETRETINATE
     Dosage: 20 MG IN THE MORNING, 10 MG IN THE EVENING
     Route: 048
     Dates: start: 20171002, end: 20171004
  6. COSENTYX [Suspect]
     Active Substance: SECUKINUMAB
     Dosage: 300 MG, QW
     Route: 058
     Dates: start: 20171113, end: 20171113
  7. COSENTYX [Suspect]
     Active Substance: SECUKINUMAB
     Indication: PSORIASIS
     Dosage: 300 MG, QW
     Route: 058
     Dates: start: 20170925, end: 20170925
  8. COSENTYX [Suspect]
     Active Substance: SECUKINUMAB
     Dosage: 300 MG, 4W
     Route: 058
  9. COSENTYX [Suspect]
     Active Substance: SECUKINUMAB
     Dosage: 300 MG, QW
     Route: 058
     Dates: start: 20171002, end: 20171002

REACTIONS (2)
  - Concomitant disease aggravated [Recovering/Resolving]
  - Eosinophil count increased [Recovering/Resolving]

NARRATIVE: CASE EVENT DATE: 20170929
